FAERS Safety Report 14528670 (Version 2)
Quarter: 2021Q1

REPORT INFORMATION
  Report Type: Spontaneous
  Country: DE (occurrence: DE)
  Receive Date: 20180214
  Receipt Date: 20210316
  Transmission Date: 20210419
  Serious: Yes (Other)
  Sender: FDA-Public Use
  Company Number: DE-MACLEODS PHARMACEUTICALS US LTD-MAC2018009772

PATIENT

DRUGS (11)
  1. DEKRISTOL [Concomitant]
     Active Substance: CHOLECALCIFEROL
     Indication: PRODUCT USED FOR UNKNOWN INDICATION
     Dosage: UNK
     Route: 065
  2. PANTOZOLE [Concomitant]
     Active Substance: PANTOPRAZOLE SODIUM
     Indication: PRODUCT USED FOR UNKNOWN INDICATION
     Dosage: UNK
     Route: 065
  3. BISOPROLOL [Concomitant]
     Active Substance: BISOPROLOL
     Indication: PRODUCT USED FOR UNKNOWN INDICATION
     Dosage: UNK
     Route: 065
  4. METHYLPREDNISOLONE. [Suspect]
     Active Substance: METHYLPREDNISOLONE
     Indication: STEVENS-JOHNSON SYNDROME
     Dosage: 60 MILLIGRAM
     Route: 065
  5. CLOBETASOL [Suspect]
     Active Substance: CLOBETASOL
     Indication: STEVENS-JOHNSON SYNDROME
     Dosage: UNK
     Route: 061
  6. SULTAMICILLIN [Suspect]
     Active Substance: SULTAMICILLIN
     Indication: PNEUMONIA
     Dosage: UNK
     Route: 065
  7. PREDNICARBATE. [Suspect]
     Active Substance: PREDNICARBATE
     Indication: STEVENS-JOHNSON SYNDROME
     Dosage: UNK
     Route: 061
  8. TILIDINE [Concomitant]
     Active Substance: TILIDINE
     Indication: PRODUCT USED FOR UNKNOWN INDICATION
     Dosage: UNK
     Route: 065
  9. AMLODIPINE [Concomitant]
     Active Substance: AMLODIPINE BESYLATE
     Indication: PRODUCT USED FOR UNKNOWN INDICATION
     Dosage: UNK
     Route: 065
  10. TOREM [Concomitant]
     Active Substance: TORSEMIDE
     Indication: PRODUCT USED FOR UNKNOWN INDICATION
     Dosage: UNK
     Route: 065
  11. LEVOTHYROXINE. [Concomitant]
     Active Substance: LEVOTHYROXINE
     Indication: PRODUCT USED FOR UNKNOWN INDICATION
     Dosage: UNK
     Route: 065

REACTIONS (7)
  - Ecthyma [Recovering/Resolving]
  - Rash [Recovering/Resolving]
  - Perivascular dermatitis [Recovering/Resolving]
  - Skin erosion [Recovering/Resolving]
  - Escherichia infection [Recovering/Resolving]
  - Bacteraemia [Recovering/Resolving]
  - Hyperplasia [Recovering/Resolving]
